FAERS Safety Report 8001790 (Version 2)
Quarter: 2013Q2

REPORT INFORMATION
  Report Type: Spontaneous
  Country: US (occurrence: None)
  Receive Date: 20110524
  Receipt Date: 20120621
  Transmission Date: 20140414
  Serious: Yes (Other)
  Sender: FDA-Public Use
  Company Number: 027429

PATIENT
  Sex: Female
  Weight: 78.4 kg

DRUGS (6)
  1. CIMZIA [Suspect]
     Indication: CROHN^S DISEASE
     Route: 058
     Dates: start: 20090715, end: 20110221
  2. CYMBALTA [Concomitant]
  3. ZOLPIDEM [Concomitant]
  4. NORCO [Concomitant]
  5. ERGOCALCIFEROL [Concomitant]
  6. CLONAZEPAM [Concomitant]

REACTIONS (11)
  - EAR INFECTION [None]
  - VERTIGO [None]
  - Crohn^s disease [None]
  - ARTHRALGIA [None]
  - FATIGUE [None]
  - SLEEP DISORDER [None]
  - DIARRHOEA [None]
  - Pneumonia [None]
  - Nasopharyngitis [None]
  - Cough [None]
  - Muscle strain [None]
